FAERS Safety Report 16326776 (Version 1)
Quarter: 2019Q2

REPORT INFORMATION
  Report Type: Spontaneous
  Country: DE (occurrence: DE)
  Receive Date: 20190517
  Receipt Date: 20190517
  Transmission Date: 20190711
  Serious: Yes (Other)
  Sender: FDA-Public Use
  Company Number: DE-JNJFOC-20190510415

PATIENT
  Age: 6 Decade
  Weight: 78 kg

DRUGS (1)
  1. EVICEL [Suspect]
     Active Substance: FIBRINOGEN HUMAN\THROMBIN HUMAN
     Indication: VASCULAR PSEUDOANEURYSM
     Route: 061

REACTIONS (4)
  - Off label use [Unknown]
  - Product use in unapproved indication [Unknown]
  - Vascular pseudoaneurysm [Unknown]
  - Embolism venous [Unknown]
